FAERS Safety Report 20838478 (Version 1)
Quarter: 2022Q2

REPORT INFORMATION
  Report Type: Spontaneous
  Country: US (occurrence: US)
  Receive Date: 20220517
  Receipt Date: 20220517
  Transmission Date: 20220721
  Serious: No
  Sender: FDA-Public Use
  Company Number: US-AMNEAL PHARMACEUTICALS-2021-AMRX-04975

PATIENT
  Sex: Female

DRUGS (1)
  1. GABAPENTIN [Suspect]
     Active Substance: GABAPENTIN
     Indication: Product used for unknown indication
     Dosage: UNK
     Route: 048

REACTIONS (5)
  - Cheilitis [Not Recovered/Not Resolved]
  - Lip erythema [Not Recovered/Not Resolved]
  - Lip pruritus [Not Recovered/Not Resolved]
  - Lip swelling [Not Recovered/Not Resolved]
  - Allergic reaction to excipient [Not Recovered/Not Resolved]
